FAERS Safety Report 10264066 (Version 1)
Quarter: 2014Q2

REPORT INFORMATION
  Report Type: Spontaneous
  Country: US (occurrence: US)
  Receive Date: 20140627
  Receipt Date: 20140627
  Transmission Date: 20141212
  Serious: Yes (Hospitalization)
  Sender: FDA-Public Use
  Company Number: US-BIOGENIDEC-2014BI059535

PATIENT
  Age: 66 Year
  Sex: Female

DRUGS (6)
  1. TECFIDERA [Suspect]
     Indication: MULTIPLE SCLEROSIS
     Route: 048
     Dates: start: 20140203
  2. AMPYRA [Concomitant]
  3. CALCIUM CARBONATE [Concomitant]
  4. HYDROCODONE BITARTRATE [Concomitant]
  5. LISINOPRIL [Concomitant]
  6. LOMOTIL [Concomitant]

REACTIONS (1)
  - Nephrolithiasis [Unknown]
